FAERS Safety Report 5228849-6 (Version None)
Quarter: 2007Q1

REPORT INFORMATION
  Report Type: 
  Country: None (occurrence: None)
  Receive Date: 20070205
  Receipt Date: 20070131
  Transmission Date: 20070707
  Serious: Yes (Life-Threatening, Hospitalization)
  Sender: FDA-Public Use
  Company Number: PHHO2007CL02251

PATIENT

DRUGS (1)
  1. ZELMAC / HTF 919A [Suspect]
     Route: 048
     Dates: start: 20061201

REACTIONS (2)
  - INTESTINAL OBSTRUCTION [None]
  - INTESTINAL OPERATION [None]
